FAERS Safety Report 8794419 (Version 1)
Quarter: 2012Q4

REPORT INFORMATION
  Report Type: 
  Country: DE (occurrence: DE)
  Receive Date: 20120917
  Receipt Date: 20120917
  Transmission Date: 20130627
  Serious: Yes (Hospitalization)
  Sender: FDA-Public Use
  Company Number: DE-PFIZER INC-2012224105

PATIENT
  Age: 59 Year
  Sex: Female
  Weight: 90 kg

DRUGS (12)
  1. GENOTROPIN [Suspect]
     Dosage: 0.2 mg, 1xday, 7injections/week
     Route: 058
     Dates: start: 20060603
  2. HYDROCORTISONE [Concomitant]
     Indication: BLOOD CORTICOTROPHIN DECREASED
     Dosage: UNK
     Dates: start: 19920701
  3. ASTONIN-H [Concomitant]
     Indication: HYPOTENSION
     Dosage: UNK
     Dates: start: 19920701
  4. LEVOTHYROXINE [Concomitant]
     Indication: BLOOD THYROID STIMULATING HORMONE DECREASED
     Dosage: UNK
     Dates: start: 19900915
  5. LEVOTHYROXINE [Concomitant]
     Indication: PRIMARY HYPOTHYROIDISM
  6. ACETYLSALICYLIC ACID [Concomitant]
     Indication: ARTERIOSCLEROSIS
     Dosage: UNK
     Dates: start: 20011001
  7. PRESOMEN [Concomitant]
     Indication: BLOOD LUTEINISING HORMONE DECREASED
     Dosage: UNK
     Dates: start: 19900701
  8. PRESOMEN [Concomitant]
     Indication: BLOOD FOLLICLE STIMULATING HORMONE DECREASED
  9. PRESOMEN [Concomitant]
     Indication: HYPOGONADISM FEMALE
  10. TORASEMIDE [Concomitant]
     Indication: URINARY TRACT DISORDER
     Dosage: UNK
     Dates: start: 20060203
  11. ASS ^HEXAL^ [Concomitant]
     Dosage: UNK
     Dates: start: 20060203
  12. OSPUR D3 [Concomitant]
     Indication: OSTEOPOROSIS
     Dosage: UNK
     Dates: start: 20060203

REACTIONS (2)
  - Adrenocortical insufficiency acute [Unknown]
  - Pneumonia [Unknown]
